FAERS Safety Report 23927626 (Version 1)
Quarter: 2024Q2

REPORT INFORMATION
  Report Type: Report from Study
  Country: CO (occurrence: CO)
  Receive Date: 20240531
  Receipt Date: 20240531
  Transmission Date: 20240716
  Serious: Yes (Hospitalization, Other)
  Sender: FDA-Public Use
  Company Number: CO-ABBVIE-5781451

PATIENT
  Sex: Female

DRUGS (22)
  1. VENETOCLAX [Suspect]
     Active Substance: VENETOCLAX
     Indication: Acute myeloid leukaemia
     Dosage: 200 MG PER ORAL EVERY 24 HOURS; INITIAL; CYCLE 1
     Route: 048
     Dates: start: 20240423, end: 20240516
  2. VENETOCLAX [Suspect]
     Active Substance: VENETOCLAX
     Indication: Acute myeloid leukaemia
     Dosage: 200 MG PER ORAL EVERY 24 HOURS; MAINTENANCE; CYCLE 2
     Route: 048
     Dates: start: 20240522, end: 20240524
  3. ONDANSETRON [Concomitant]
     Active Substance: ONDANSETRON
     Indication: Prophylaxis of nausea and vomiting
     Route: 042
     Dates: start: 20240422, end: 20240429
  4. ACETAMINOPHEN\CAFFEINE [Concomitant]
     Active Substance: ACETAMINOPHEN\CAFFEINE
     Indication: Pain prophylaxis
     Dosage: 500 MG/65 MG
     Route: 048
     Dates: start: 20240423
  5. ESOMEPRAZOLE [Concomitant]
     Active Substance: ESOMEPRAZOLE
     Indication: Gastrointestinal disorder prophylaxis
     Dosage: 40 MILLIGRAM
     Route: 048
     Dates: start: 20240418
  6. VANCOMYCIN [Concomitant]
     Active Substance: VANCOMYCIN
     Indication: Clostridium difficile infection
     Route: 048
     Dates: start: 20240428, end: 20240510
  7. ENALAPRIL [Concomitant]
     Active Substance: ENALAPRIL
     Indication: Hypertension
     Dosage: 20 MILLIGRAM
     Route: 048
     Dates: start: 2014
  8. PREGABALIN [Concomitant]
     Active Substance: PREGABALIN
     Indication: Pain prophylaxis
     Dosage: 150 MILLIGRAM
     Route: 048
     Dates: start: 20240423
  9. LACTULOSE [Concomitant]
     Active Substance: LACTULOSE
     Indication: Constipation
     Dosage: 15 MILLILITER
     Route: 048
     Dates: start: 20240429, end: 20240507
  10. SULFAMETHOXAZOLE\TRIMETHOPRIM [Concomitant]
     Active Substance: SULFAMETHOXAZOLE\TRIMETHOPRIM
     Indication: Antibiotic prophylaxis
     Dosage: 160MG/800 MG
     Route: 048
     Dates: start: 20240418
  11. ACYCLOVIR [Concomitant]
     Active Substance: ACYCLOVIR
     Indication: Antiviral prophylaxis
     Route: 048
     Dates: start: 20240418
  12. KETOROLAC [Concomitant]
     Active Substance: KETOROLAC TROMETHAMINE
     Indication: Pain prophylaxis
     Route: 042
     Dates: start: 20240423, end: 20240425
  13. LACTATED RINGERS SOLUTION [Concomitant]
     Active Substance: CALCIUM CHLORIDE\POTASSIUM CHLORIDE\SODIUM CHLORIDE\SODIUM LACTATE
     Indication: Prophylaxis against dehydration
     Dosage: 62 MILLILITER; FREQUENCY TEXT: CONTINUED INFUSION
     Route: 042
     Dates: start: 20240427, end: 20240507
  14. FLUCONAZOLE [Concomitant]
     Active Substance: FLUCONAZOLE
     Indication: Antifungal prophylaxis
     Dosage: 400 MILLIGRAM
     Route: 048
     Dates: start: 20240429
  15. TAPENTADOL [Concomitant]
     Active Substance: TAPENTADOL
     Indication: Pain prophylaxis
     Route: 048
     Dates: start: 20240423
  16. AZACITIDINE [Concomitant]
     Active Substance: AZACITIDINE
     Indication: Acute myeloid leukaemia
     Dosage: 120 MG SUBCUTANEOUSLY EVERY 24 HOURS; INITIAL, CYCLE 1
     Route: 058
     Dates: start: 20240423, end: 20240429
  17. AZACITIDINE [Concomitant]
     Active Substance: AZACITIDINE
     Indication: Acute myeloid leukaemia
     Dosage: 120 MG SUBCUTANEOUSLY EVERY 24 HOURS; MAINTENANCE , CYCLE 2
     Route: 058
     Dates: start: 20240522, end: 20240524
  18. ENOXAPARIN [Concomitant]
     Active Substance: ENOXAPARIN
     Indication: Venous thrombosis limb
     Route: 058
     Dates: start: 20240523
  19. OXYGEN [Concomitant]
     Active Substance: OXYGEN
     Indication: Pneumonia
     Dosage: 1 LT/MIN; FREQUENCY TEXT: CONTINUED
     Route: 045
     Dates: start: 20240424, end: 202404
  20. ALLOPURINOL [Concomitant]
     Active Substance: ALLOPURINOL
     Indication: Prophylaxis
     Dosage: 300 MILLIGRAM
     Route: 048
     Dates: start: 20240418, end: 20240507
  21. NEFOPAM [Concomitant]
     Active Substance: NEFOPAM
     Indication: Pain prophylaxis
     Route: 042
     Dates: start: 20240423, end: 20240430
  22. POTASSIUM CHLORIDE [Concomitant]
     Active Substance: POTASSIUM CHLORIDE
     Indication: Hypokalaemia
     Route: 042
     Dates: start: 20240422, end: 20240511

REACTIONS (9)
  - Neutropenia [Recovering/Resolving]
  - Hypokalaemia [Unknown]
  - Febrile neutropenia [Recovering/Resolving]
  - Clostridium difficile infection [Unknown]
  - Pain in extremity [Unknown]
  - Toxicity to various agents [Unknown]
  - Pneumonia [Unknown]
  - Constipation [Recovered/Resolved]
  - Thrombosis [Recovering/Resolving]

NARRATIVE: CASE EVENT DATE: 20240101
